FAERS Safety Report 7823527-9 (Version None)
Quarter: 2011Q4

REPORT INFORMATION
  Report Type: 
  Country: None (occurrence: None)
  Receive Date: 20111019
  Receipt Date: 20111013
  Transmission Date: 20120403
  Serious: Yes (Other)
  Sender: FDA-Public Use
  Company Number: DE-PFIZER INC-2011245978

PATIENT
  Age: 73 Year
  Sex: Female

DRUGS (3)
  1. ASPIRIN [Concomitant]
  2. SUTENT [Suspect]
     Indication: METASTATIC RENAL CELL CARCINOMA
     Dosage: 50 MG, UNK
     Route: 048
     Dates: start: 20110801, end: 20110901
  3. ATACAND [Concomitant]

REACTIONS (2)
  - CARDIOVASCULAR DISORDER [None]
  - PALMAR-PLANTAR ERYTHRODYSAESTHESIA SYNDROME [None]
